FAERS Safety Report 16126959 (Version 1)
Quarter: 2019Q2

REPORT INFORMATION
  Report Type: Spontaneous
  Country: US (occurrence: US)
  Receive Date: 20190327
  Receipt Date: 20190327
  Transmission Date: 20190711
  Serious: No
  Sender: FDA-Public Use
  Company Number: None

PATIENT
  Age: 66 Year
  Sex: Female
  Weight: 69.3 kg

DRUGS (6)
  1. ADVIL [Concomitant]
     Active Substance: IBUPROFEN
  2. LORAZEPAM. [Concomitant]
     Active Substance: LORAZEPAM
  3. SYNTHROID [Concomitant]
     Active Substance: LEVOTHYROXINE SODIUM
  4. CRESTOR [Concomitant]
     Active Substance: ROSUVASTATIN CALCIUM
  5. TYLENOL [Concomitant]
     Active Substance: ACETAMINOPHEN
  6. LORAZEPAM 0.5 MG TABLET [Suspect]
     Active Substance: LORAZEPAM
     Indication: ANXIETY
     Dosage: ?          QUANTITY:1 TABLET(S);?
     Route: 048
     Dates: start: 20190218, end: 20190315

REACTIONS (5)
  - Headache [None]
  - Irritability [None]
  - Product quality issue [None]
  - Abnormal behaviour [None]
  - Product substitution issue [None]

NARRATIVE: CASE EVENT DATE: 20190218
